FAERS Safety Report 11221509 (Version 2)
Quarter: 2015Q3

REPORT INFORMATION
  Report Type: Report from Study
  Country: US (occurrence: US)
  Receive Date: 20150626
  Receipt Date: 20150707
  Transmission Date: 20151125
  Serious: Yes (Hospitalization, Other)
  Sender: FDA-Public Use
  Company Number: US-AMGEN-USASL2015061565

PATIENT
  Age: 73 Year
  Sex: Female

DRUGS (1)
  1. ENBREL [Suspect]
     Active Substance: ETANERCEPT
     Indication: RHEUMATOID ARTHRITIS
     Dosage: UNK UNK, QWK
     Route: 065
     Dates: start: 20060101

REACTIONS (14)
  - Limb operation [Recovered/Resolved]
  - Knee operation [Recovered/Resolved]
  - Cataract [Not Recovered/Not Resolved]
  - Pain [Not Recovered/Not Resolved]
  - Finger deformity [Not Recovered/Not Resolved]
  - Bone density abnormal [Not Recovered/Not Resolved]
  - Mobility decreased [Not Recovered/Not Resolved]
  - Arthralgia [Not Recovered/Not Resolved]
  - Hip fracture [Recovered/Resolved]
  - Fibromyalgia [Not Recovered/Not Resolved]
  - Exostosis [Not Recovered/Not Resolved]
  - Arthrodesis [Recovered/Resolved]
  - Herpes zoster [Recovered/Resolved]
  - Hand deformity [Not Recovered/Not Resolved]

NARRATIVE: CASE EVENT DATE: 201406
